FAERS Safety Report 14362203 (Version 2)
Quarter: 2018Q1

REPORT INFORMATION
  Report Type: Report from Study
  Country: None (occurrence: US)
  Receive Date: 20180108
  Receipt Date: 20180109
  Transmission Date: 20180509
  Serious: Yes (Other)
  Sender: FDA-Public Use
  Company Number: US-ABBVIE-18K-163-2209394-00

PATIENT
  Age: 60 Year
  Sex: Female

DRUGS (1)
  1. HUMIRA [Suspect]
     Active Substance: ADALIMUMAB
     Indication: CROHN^S DISEASE
     Route: 058

REACTIONS (8)
  - Arthritis [Unknown]
  - Varicella [Recovered/Resolved]
  - Drug ineffective [Unknown]
  - Rash [Unknown]
  - Rash morbilliform [Recovered/Resolved]
  - Rash [Recovered/Resolved]
  - Renal function test abnormal [Unknown]
  - Fistula [Unknown]

NARRATIVE: CASE EVENT DATE: 201610
